FAERS Safety Report 15003494 (Version 2)
Quarter: 2018Q3

REPORT INFORMATION
  Report Type: Report from Study
  Country: None (occurrence: RO)
  Receive Date: 20180613
  Receipt Date: 20180829
  Transmission Date: 20181010
  Serious: Yes (Hospitalization, Other)
  Sender: FDA-Public Use
  Company Number: RO-KADMON PHARMACEUTICALS, LLC-KAD-201806-01323

PATIENT
  Age: 65 Year
  Sex: Male

DRUGS (13)
  1. ESSENTIALE FORTE [Concomitant]
  2. CONTROLOC [Concomitant]
     Active Substance: PANTOPRAZOLE SODIUM
     Dosage: 1 DOSAGE FORM
     Route: 048
  3. PROPRANOLOL [Concomitant]
     Active Substance: PROPRANOLOL HYDROCHLORIDE
     Indication: VARICES OESOPHAGEAL
     Dosage: 2 DOSAGE FORMS
     Route: 048
  4. RIBAVIRIN. [Suspect]
     Active Substance: RIBAVIRIN
     Dosage: 3 DOSAGE FORM
     Route: 048
     Dates: start: 201804, end: 20180506
  5. RIBAVIRIN. [Suspect]
     Active Substance: RIBAVIRIN
     Indication: HEPATIC CIRRHOSIS
     Dosage: 3 DOSAGE FORMS
     Route: 048
     Dates: start: 20180212, end: 201803
  6. VEROSPIRON [Concomitant]
     Active Substance: SPIRONOLACTONE
  7. NORMIX [Concomitant]
     Active Substance: RIFAXIMIN
     Dosage: 3 DOSAGE FORMS
  8. MODERIBA [Concomitant]
     Active Substance: RIBAVIRIN
     Dosage: 2 DOSAGE FORMS
     Route: 048
     Dates: start: 201803
  9. RIBAVIRIN. [Suspect]
     Active Substance: RIBAVIRIN
     Dosage: 2 DOSAGE FORM
     Route: 048
     Dates: start: 201803, end: 201804
  10. LEDIPASVIR/SOFOSBUVIR [Suspect]
     Active Substance: LEDIPASVIR\SOFOSBUVIR
     Indication: HEPATIC CIRRHOSIS
     Dosage: 1 DOSAGE FORM
     Route: 048
     Dates: start: 20180212, end: 20180506
  11. FUROSEMIDE. [Concomitant]
     Active Substance: FUROSEMIDE
  12. TIOLIN COMPLEX [Concomitant]
  13. LAGOSA [Concomitant]
     Active Substance: DIETARY SUPPLEMENT\HERBALS\MILK THISTLE

REACTIONS (13)
  - Purging [Not Recovered/Not Resolved]
  - Leukopenia [Unknown]
  - Blood bilirubin increased [Not Recovered/Not Resolved]
  - Off label use [Not Recovered/Not Resolved]
  - Diabetic ketoacidosis [Recovered/Resolved]
  - Ascites [Not Recovered/Not Resolved]
  - Asthenia [Unknown]
  - Abdominal distension [Not Recovered/Not Resolved]
  - Blood glucose fluctuation [Unknown]
  - Localised oedema [Not Recovered/Not Resolved]
  - Oedema peripheral [Unknown]
  - Thrombocytopenia [Unknown]
  - Drug ineffective [Unknown]

NARRATIVE: CASE EVENT DATE: 2018
